FAERS Safety Report 11194382 (Version 8)
Quarter: 2017Q1

REPORT INFORMATION
  Report Type: Report from Study
  Country: CA (occurrence: CA)
  Receive Date: 20150616
  Receipt Date: 20170227
  Transmission Date: 20170428
  Serious: Yes (Hospitalization, Other)
  Sender: FDA-Public Use
  Company Number: PHHY2015CA032875

PATIENT
  Age: 62 Year
  Sex: Male

DRUGS (5)
  1. SANDOSTATIN [Suspect]
     Active Substance: OCTREOTIDE ACETATE
     Dosage: 200 UG, BID (FOR 30 DAYS)
     Route: 058
     Dates: start: 20150311, end: 20150409
  2. SANDOSTATIN LAR DEPOT [Suspect]
     Active Substance: OCTREOTIDE ACETATE
     Indication: NEUROENDOCRINE TUMOUR
     Dosage: 30 MG, QMO (EVERY 4 WEEKS)
     Route: 030
     Dates: start: 20150319
  3. ASPIRIN. [Concomitant]
     Active Substance: ASPIRIN
     Indication: PRODUCT USED FOR UNKNOWN INDICATION
     Dosage: 81 MG, QD
     Route: 048
  4. SANDOSTATIN [Suspect]
     Active Substance: OCTREOTIDE ACETATE
     Indication: NEUROENDOCRINE TUMOUR
     Dosage: 100 UG, ONCE/SINGLE (TEST DOSE)
     Route: 058
     Dates: start: 20150306, end: 20150306
  5. ACEBUTOLOL [Concomitant]
     Active Substance: ACEBUTOLOL
     Indication: PRODUCT USED FOR UNKNOWN INDICATION
     Dosage: 400 MG, QD
     Route: 065

REACTIONS (20)
  - Postoperative abscess [Unknown]
  - Pain in extremity [Unknown]
  - Pneumonia [Unknown]
  - Decreased appetite [Unknown]
  - Malaise [Unknown]
  - Rash [Unknown]
  - Pruritus [Unknown]
  - Renal pain [Unknown]
  - Urticaria [Unknown]
  - Flushing [Not Recovered/Not Resolved]
  - Pulmonary embolism [Unknown]
  - Injection site pain [Unknown]
  - Injection site bruising [Unknown]
  - Abdominal pain upper [Unknown]
  - Fatigue [Unknown]
  - Wrong technique in product usage process [Unknown]
  - Blood pressure increased [Unknown]
  - Injection site mass [Unknown]
  - Chills [Unknown]
  - Body temperature decreased [Unknown]

NARRATIVE: CASE EVENT DATE: 2015
